FAERS Safety Report 17139061 (Version 1)
Quarter: 2019Q4

REPORT INFORMATION
  Report Type: Spontaneous
  Country: US (occurrence: US)
  Receive Date: 20191211
  Receipt Date: 20191211
  Transmission Date: 20200122
  Serious: Yes (Other)
  Sender: FDA-Public Use
  Company Number: US-AMGEN-USASP2019201654

PATIENT

DRUGS (2)
  1. FILGRASTIM [Suspect]
     Active Substance: FILGRASTIM
     Dosage: 480 MICROGRAM, QD (AT DAY 5)
     Route: 065
  2. FILGRASTIM [Suspect]
     Active Substance: FILGRASTIM
     Indication: HAEMATOPOIETIC STEM CELL MOBILISATION
     Dosage: UNK UNK, QD (FOR FOUR DAYS)
     Route: 065

REACTIONS (7)
  - Bacterial infection [Unknown]
  - Sepsis [Unknown]
  - Infection [Unknown]
  - Respiratory tract infection [Unknown]
  - Urinary tract infection [Unknown]
  - Fungal infection [Unknown]
  - Clostridium difficile infection [Unknown]
